FAERS Safety Report 5887259-9 (Version None)
Quarter: 2008Q3

REPORT INFORMATION
  Report Type: 
  Country: None (occurrence: None)
  Receive Date: 20080915
  Receipt Date: 20080829
  Transmission Date: 20090109
  Serious: No
  Sender: FDA-Public Use
  Company Number: 2008S1000091

PATIENT
  Age: 38 Year
  Sex: Female

DRUGS (1)
  1. INOMAX [Suspect]
     Indication: PULMONARY ARTERIAL HYPERTENSION
     Dosage: 20 PPM;CONT;INH
     Route: 055
     Dates: start: 20080827, end: 20080828

REACTIONS (3)
  - CARDIO-RESPIRATORY ARREST [None]
  - DEVICE FAILURE [None]
  - PULMONARY EMBOLISM [None]
